FAERS Safety Report 5445608-X (Version None)
Quarter: 2007Q3

REPORT INFORMATION
  Report Type: 
  Country: None (occurrence: None)
  Receive Date: 20070906
  Receipt Date: 20070827
  Transmission Date: 20080115
  Serious: Yes (Death)
  Sender: FDA-Public Use
  Company Number: FR-ABBOTT-07P-056-0415087-00

PATIENT
  Age: 38 Year
  Sex: Male

DRUGS (6)
  1. DEPAKOTE [Suspect]
     Indication: SCHIZOPHRENIA
     Route: 048
     Dates: start: 20070601
  2. CHLORPROMAZINE HYDROCHLORIDE [Suspect]
     Indication: SCHIZOPHRENIA
     Dosage: 4 %
     Route: 048
     Dates: start: 20070725
  3. TROPATEPINE HYDROCHLORIDE [Suspect]
     Indication: SCHIZOPHRENIA
     Route: 048
     Dates: start: 20070725
  4. ALIMEMAZINE TARTRATE [Suspect]
     Indication: SCHIZOPHRENIA
     Dosage: 4 %
     Route: 048
     Dates: start: 20070725
  5. RISPERIDONE [Concomitant]
     Indication: DRUG USE FOR UNKNOWN INDICATION
     Route: 048
     Dates: start: 20070601
  6. CLONAZEPAM [Concomitant]
     Indication: DRUG USE FOR UNKNOWN INDICATION
     Route: 065
     Dates: start: 20070601

REACTIONS (1)
  - SUDDEN DEATH [None]
